FAERS Safety Report 21482619 (Version 1)
Quarter: 2022Q4

REPORT INFORMATION
  Report Type: Spontaneous
  Country: NO (occurrence: NO)
  Receive Date: 20221020
  Receipt Date: 20221020
  Transmission Date: 20230113
  Serious: Yes (Hospitalization)
  Sender: FDA-Public Use
  Company Number: None

PATIENT
  Age: 63 Year
  Sex: Female

DRUGS (6)
  1. SAXENDA [Suspect]
     Active Substance: LIRAGLUTIDE
     Dosage: TITRATION TO 3 MG.
     Dates: end: 202201
  2. SAXENDA [Suspect]
     Active Substance: LIRAGLUTIDE
     Dosage: UNK
  3. SAXENDA [Suspect]
     Active Substance: LIRAGLUTIDE
     Indication: Obesity
     Dosage: INITIAL DOSE 0,6 MG
     Dates: start: 20211115
  4. LERKANIDIPIN ACTAVIS [Concomitant]
     Indication: Product used for unknown indication
     Dosage: 10 MG
  5. CETIRIZIN MYLAN [Concomitant]
     Indication: Product used for unknown indication
     Dosage: 10 MG
  6. IMOVANE [Concomitant]
     Active Substance: ZOPICLONE
     Indication: Product used for unknown indication
     Dosage: 7.5 MG

REACTIONS (3)
  - Ischaemic cerebral infarction [Recovered/Resolved with Sequelae]
  - Aphasia [Not Recovered/Not Resolved]
  - Fatigue [Not Recovered/Not Resolved]

NARRATIVE: CASE EVENT DATE: 20220213
